FAERS Safety Report 24676937 (Version 1)
Quarter: 2024Q4

REPORT INFORMATION
  Report Type: Spontaneous
  Country: US (occurrence: US)
  Receive Date: 20241128
  Receipt Date: 20241128
  Transmission Date: 20250115
  Serious: Yes (Other)
  Sender: STRIDES
  Company Number: US-STRIDES ARCOLAB LIMITED-2024SP015567

PATIENT
  Age: 24 Year
  Sex: Female

DRUGS (3)
  1. CYCLOSPORINE [Suspect]
     Active Substance: CYCLOSPORINE
     Indication: Glomerulonephritis membranous
     Dosage: 75 MILLIGRAM, BID
     Route: 065
  2. METHYLPREDNISOLONE [Suspect]
     Active Substance: METHYLPREDNISOLONE
     Indication: Glomerulonephritis membranous
     Dosage: 500 MILLIGRAM; PULSE DOSE
     Route: 065
  3. METHYLPREDNISOLONE [Suspect]
     Active Substance: METHYLPREDNISOLONE
     Dosage: 5 MG DAILY
     Route: 065

REACTIONS (3)
  - Premature delivery [Unknown]
  - Maternal exposure during pregnancy [Unknown]
  - Off label use [Unknown]
